FAERS Safety Report 25883740 (Version 1)
Quarter: 2025Q4

REPORT INFORMATION
  Report Type: Report from Study
  Country: EU (occurrence: EU)
  Receive Date: 20251006
  Receipt Date: 20251006
  Transmission Date: 20260118
  Serious: Yes (Hospitalization, Other)
  Sender: SUNOVION
  Company Number: EU-BIAL-BIAL-19924

PATIENT
  Age: 26 Year
  Sex: Male

DRUGS (18)
  1. ESLICARBAZEPINE ACETATE [Suspect]
     Active Substance: ESLICARBAZEPINE ACETATE
     Indication: Epilepsy
     Dosage: 0-0-0.5 TABLETS
  2. CENOBAMATE [Suspect]
     Active Substance: CENOBAMATE
     Indication: Epilepsy
     Dosage: 50 MILLIGRAM
     Route: 048
     Dates: start: 20240603
  3. CENOBAMATE [Suspect]
     Active Substance: CENOBAMATE
     Dosage: 200 MILLIGRAM, QD
     Route: 048
  4. CENOBAMATE [Suspect]
     Active Substance: CENOBAMATE
     Dosage: 250 MILLIGRAM, QD
     Route: 048
  5. CENOBAMATE [Suspect]
     Active Substance: CENOBAMATE
     Dosage: 300 MILLIGRAM, QD
     Route: 048
  6. CENOBAMATE [Suspect]
     Active Substance: CENOBAMATE
     Dosage: 225 MILLIGRAM, QD
     Route: 048
     Dates: start: 20250411
  7. CENOBAMATE [Suspect]
     Active Substance: CENOBAMATE
     Dosage: 212.5 MILLIGRAM, QD
     Route: 048
     Dates: start: 20250411
  8. LACOSAMIDE [Suspect]
     Active Substance: LACOSAMIDE
     Indication: Product used for unknown indication
     Dosage: 100, MG BID
     Dates: start: 20240603
  9. LACOSAMIDE [Suspect]
     Active Substance: LACOSAMIDE
     Dosage: 50-0-100MG
     Dates: start: 20240723, end: 20240724
  10. LACOSAMIDE [Suspect]
     Active Substance: LACOSAMIDE
     Dosage: 100-0-100MG
     Dates: start: 20240724
  11. CLOBAZAM [Suspect]
     Active Substance: CLOBAZAM
     Indication: Epilepsy
     Dosage: 10-0-15. AFTER 5 DAYS HE WAS ADVISED TO REDUCE TO 5-0-15 AND THEN TO 0-0- 15MG. IF DROWSINESS PERSISTS, HE HAS BEEN INSTRUCTED TO REDUCE 5MG EVERY WEEK AND MAINTAIN AT 0-0-10MG. FU2: ON ADMISSION, HE WAS TAKING 10MG OF CLOBAZAM IN THE MORNING. CURRENTLY 5-0-15MG (ON 11/07/24 HE HAS TO REDUCE TO 0-0-
  12. CLOBAZAM [Suspect]
     Active Substance: CLOBAZAM
     Dosage: 5-5-5MG
  13. BRIVIACT [Suspect]
     Active Substance: BRIVARACETAM
     Indication: Epilepsy
     Dosage: 300-0-300
  14. BRIVIACT [Suspect]
     Active Substance: BRIVARACETAM
     Dosage: 100-0-100
  15. VALPROATE SODIUM [Suspect]
     Active Substance: VALPROATE SODIUM
     Indication: Epilepsy
     Dosage: 300-0-300
  16. VALPROATE SODIUM [Suspect]
     Active Substance: VALPROATE SODIUM
     Dosage: 200-200-200
  17. CANNABIDIOL [Suspect]
     Active Substance: CANNABIDIOL
     Indication: Epilepsy
     Dosage: 5.5-0-5.5
  18. CANNABIDIOL [Suspect]
     Active Substance: CANNABIDIOL
     Dosage: 400-0-400

REACTIONS (11)
  - Weight decreased [Not Recovered/Not Resolved]
  - Status epilepticus [Recovered/Resolved]
  - Seizure [Unknown]
  - Decreased appetite [Not Recovered/Not Resolved]
  - Sluggishness [Not Recovered/Not Resolved]
  - Somnolence [Unknown]
  - Fatigue [Not Recovered/Not Resolved]
  - Asthenia [Not Recovered/Not Resolved]
  - Nausea [Not Recovered/Not Resolved]
  - Vomiting [Not Recovered/Not Resolved]
  - Constipation [Not Recovered/Not Resolved]

NARRATIVE: CASE EVENT DATE: 20240603
